FAERS Safety Report 8418563-8 (Version None)
Quarter: 2012Q2

REPORT INFORMATION
  Report Type: 
  Country: None (occurrence: None)
  Receive Date: 20120607
  Receipt Date: 20120531
  Transmission Date: 20120825
  Serious: No
  Sender: FDA-Public Use
  Company Number: US-PFIZER INC-2012132334

PATIENT

DRUGS (5)
  1. LYRICA [Suspect]
     Dosage: UNK
  2. CYMBALTA [Suspect]
     Dosage: UNK
  3. CRESTOR [Suspect]
     Indication: BLOOD CHOLESTEROL INCREASED
     Dosage: UNK
  4. ZOPLICONE [Suspect]
     Indication: SLEEP DISORDER
     Dosage: UNK
  5. INSULIN [Suspect]
     Indication: DIABETES MELLITUS
     Dosage: UNK

REACTIONS (6)
  - ACTIVITIES OF DAILY LIVING IMPAIRED [None]
  - LOSS OF LIBIDO [None]
  - DRUG INEFFECTIVE [None]
  - DEPENDENCE [None]
  - PAIN [None]
  - WEIGHT INCREASED [None]
